FAERS Safety Report 9476925 (Version 1)
Quarter: 2013Q3

REPORT INFORMATION
  Report Type: Spontaneous
  Country: US (occurrence: US)
  Receive Date: 20130826
  Receipt Date: 20130826
  Transmission Date: 20140515
  Serious: Yes (Other)
  Sender: FDA-Public Use
  Company Number: US-MYLANLABS-2013S1013430

PATIENT
  Age: 55 Year
  Sex: Female

DRUGS (1)
  1. ESTRADIOL TRANSDERMAL SYSTEM, USP [Suspect]
     Indication: HORMONE THERAPY
     Dosage: CHANGED QWEEK
     Route: 062
     Dates: start: 20130529, end: 201306

REACTIONS (1)
  - Angioedema [Not Recovered/Not Resolved]
